FAERS Safety Report 15385119 (Version 1)
Quarter: 2018Q3

REPORT INFORMATION
  Report Type: Spontaneous
  Country: US (occurrence: US)
  Receive Date: 20180907
  Receipt Date: 20180907
  Transmission Date: 20181010
  Serious: Yes (Other)
  Sender: FDA-Public Use
  Company Number: None

PATIENT
  Age: 27 Year
  Sex: Female
  Weight: 55.8 kg

DRUGS (2)
  1. ADDERALL [Concomitant]
     Active Substance: AMPHETAMINE ASPARTATE\AMPHETAMINE SULFATE\DEXTROAMPHETAMINE SACCHARATE\DEXTROAMPHETAMINE SULFATE
  2. CHANTIX [Suspect]
     Active Substance: VARENICLINE TARTRATE
     Indication: SMOKING CESSATION THERAPY
     Dosage: ?          QUANTITY:1 TABLET(S);?
     Route: 048

REACTIONS (13)
  - Hot flush [None]
  - Rash [None]
  - Mood swings [None]
  - Feeling abnormal [None]
  - Depression [None]
  - Fatigue [None]
  - Joint swelling [None]
  - Myalgia [None]
  - Cardiac flutter [None]
  - Dyspnoea [None]
  - Skin exfoliation [None]
  - Headache [None]
  - Skin fissures [None]

NARRATIVE: CASE EVENT DATE: 20180806
